FAERS Safety Report 6413403-0 (Version None)
Quarter: 2009Q4

REPORT INFORMATION
  Report Type: 
  Country: None (occurrence: None)
  Receive Date: 20091026
  Receipt Date: 20091013
  Transmission Date: 20100525
  Serious: Yes (Other)
  Sender: FDA-Public Use
  Company Number: US-JNJFOC-20090706305

PATIENT
  Age: 39 Year
  Sex: Female

DRUGS (5)
  1. ACETAMINOPHEN [Suspect]
     Route: 048
  2. ACETAMINOPHEN [Suspect]
     Indication: SUICIDE ATTEMPT
     Route: 048
  3. GLUCOTROL [Suspect]
     Indication: SUICIDE ATTEMPT
     Route: 048
  4. VERAPAMIL [Suspect]
     Indication: DRUG USE FOR UNKNOWN INDICATION
     Route: 048
  5. PROZAC [Suspect]
     Indication: DRUG USE FOR UNKNOWN INDICATION
     Route: 065

REACTIONS (2)
  - OVERDOSE [None]
  - TACHYCARDIA [None]
